FAERS Safety Report 4565317-9 (Version None)
Quarter: 2005Q1

REPORT INFORMATION
  Report Type: 
  Country: None (occurrence: None)
  Receive Date: 20050127
  Receipt Date: 20050112
  Transmission Date: 20050727
  Serious: Yes (Life-Threatening, Hospitalization)
  Sender: FDA-Public Use
  Company Number: K200500058

PATIENT
  Age: 63 Year
  Sex: Male

DRUGS (6)
  1. EPINEPHRINE [Suspect]
     Indication: PROPHYLAXIS
     Dosage: 0.25 MG, SINGLE, SUBCUTANEOUS
     Route: 058
     Dates: start: 20010520, end: 20010520
  2. EPINEPHRINE [Suspect]
     Indication: PROPHYLAXIS
     Dosage: 0.25 MG, SINGLE, SUBCUTANEOUS
     Route: 058
     Dates: start: 20010523, end: 20010523
  3. . [Concomitant]
  4. PREDNISOLONE [Concomitant]
  5. HEPARIN [Concomitant]
  6. CLEMASTINE (CLEMASTINE) [Concomitant]

REACTIONS (1)
  - CEREBRAL HAEMORRHAGE [None]
